FAERS Safety Report 25220494 (Version 1)
Quarter: 2025Q2

REPORT INFORMATION
  Report Type: Spontaneous
  Country: US (occurrence: None)
  Receive Date: 20250418
  Receipt Date: 20250418
  Transmission Date: 20250716
  Serious: Yes (Hospitalization, Other)
  Sender: FDA-CTU
  Company Number: None

PATIENT
  Age: 57 Year
  Sex: Female

DRUGS (1)
  1. KESIMPTA [Suspect]
     Active Substance: OFATUMUMAB
     Indication: Multiple sclerosis
     Dosage: FREQUENCY : MONTHLY;?

REACTIONS (7)
  - Multiple sclerosis relapse [None]
  - Condition aggravated [None]
  - Fall [None]
  - Urinary tract infection [None]
  - Decreased interest [None]
  - Depression [None]
  - Mobility decreased [None]
